FAERS Safety Report 10045526 (Version 1)
Quarter: 2014Q1

REPORT INFORMATION
  Report Type: Spontaneous
  Country: AU (occurrence: AU)
  Receive Date: 20140328
  Receipt Date: 20140328
  Transmission Date: 20141002
  Serious: Yes (Other)
  Sender: FDA-Public Use
  Company Number: AU-MYLANLABS-2014S1006110

PATIENT
  Sex: Female

DRUGS (2)
  1. KALMA [Suspect]
     Indication: ANXIETY
  2. XANAX [Suspect]
     Indication: ANXIETY

REACTIONS (3)
  - Dyspnoea [Unknown]
  - Tremor [Unknown]
  - Discomfort [Unknown]
